FAERS Safety Report 5250886-6 (Version None)
Quarter: 2007Q1

REPORT INFORMATION
  Report Type: 
  Country: None (occurrence: None)
  Receive Date: 20070228
  Receipt Date: 20060724
  Transmission Date: 20070707
  Serious: Yes (Hospitalization, Other)
  Sender: FDA-Public Use
  Company Number: US-GLAXOSMITHKLINE-A0613337A

PATIENT
  Age: 54 Year
  Sex: Female

DRUGS (6)
  1. LAMICTAL [Suspect]
     Indication: EPILEPSY
     Dosage: 200MG TWICE PER DAY
     Route: 048
     Dates: start: 20030101, end: 20050401
  2. KLONOPIN [Concomitant]
  3. TRAZODONE HCL [Concomitant]
  4. EFFEXOR [Concomitant]
  5. STRATTERA [Concomitant]
     Dates: end: 20050101
  6. TOPAMAX [Concomitant]
     Dates: end: 20050301

REACTIONS (1)
  - APLASTIC ANAEMIA [None]
